FAERS Safety Report 5921477-6 (Version None)
Quarter: 2008Q4

REPORT INFORMATION
  Report Type: 
  Country: None (occurrence: None)
  Receive Date: 20081016
  Receipt Date: 20081016
  Transmission Date: 20090506
  Serious: Yes (Hospitalization, Disabling, Other)
  Sender: FDA-Public Use
  Company Number: None

PATIENT
  Age: 51 Year
  Sex: Female
  Weight: 116.1208 kg

DRUGS (1)
  1. TIGAN [Suspect]
     Indication: WRONG DRUG ADMINISTERED
     Dosage: ONCE IV HEP LOCK
     Route: 042
     Dates: start: 20070531

REACTIONS (5)
  - INCORRECT ROUTE OF DRUG ADMINISTRATION [None]
  - INFUSION SITE PAIN [None]
  - REFUSAL OF TREATMENT BY PATIENT [None]
  - VEIN DISORDER [None]
  - WRONG DRUG ADMINISTERED [None]
